FAERS Safety Report 8581166 (Version 6)
Quarter: 2014Q1

REPORT INFORMATION
  Report Type: Spontaneous
  Country: US (occurrence: US)
  Receive Date: 20120525
  Receipt Date: 20140213
  Transmission Date: 20141002
  Serious: Yes (Hospitalization, Other)
  Sender: FDA-Public Use
  Company Number: US-009507513-1205USA02865

PATIENT
  Sex: Female
  Weight: 85.71 kg

DRUGS (6)
  1. FOSAMAX [Suspect]
     Indication: OSTEOPOROSIS
     Dosage: 10 MG, UNK
     Route: 048
     Dates: start: 20000727, end: 200106
  2. FOSAMAX [Suspect]
     Dosage: 70 UNK, UNK
     Route: 048
     Dates: start: 200210, end: 200607
  3. FOSAMAX [Suspect]
     Dosage: UNK
     Route: 048
     Dates: end: 200311
  4. FOSAMAX [Suspect]
     Dosage: UNK
  5. ACTONEL [Suspect]
     Indication: OSTEOPOROSIS
     Dosage: 35 MG, UNK
     Route: 048
     Dates: start: 20030626, end: 200310
  6. ACTONEL [Suspect]
     Dosage: 35 MG, UNK
     Dates: start: 200710, end: 200804

REACTIONS (9)
  - Femur fracture [Recovered/Resolved]
  - Tooth disorder [Unknown]
  - Cystitis [Recovered/Resolved]
  - Wrist fracture [Unknown]
  - Hypothyroidism [Unknown]
  - Diabetes mellitus [Not Recovered/Not Resolved]
  - Chest pain [Unknown]
  - Thyroid disorder [Unknown]
  - Dysphagia [Unknown]
